FAERS Safety Report 7832008-8 (Version None)
Quarter: 2011Q4

REPORT INFORMATION
  Report Type: 
  Country: None (occurrence: None)
  Receive Date: 20111021
  Receipt Date: 20111020
  Transmission Date: 20120403
  Serious: Yes (Death, Hospitalization, Other)
  Sender: FDA-Public Use
  Company Number: US-ASTRAZENECA-2009UW11417

PATIENT
  Age: 57 Year
  Sex: Male

DRUGS (3)
  1. SEROQUEL [Suspect]
     Indication: THINKING ABNORMAL
     Route: 048
     Dates: start: 20040101
  2. SEROQUEL [Suspect]
     Dosage: 100 MG TO 600 MG
     Route: 048
     Dates: start: 20040301, end: 20080101
  3. VENLAFAXINE HCL [Concomitant]
     Indication: DEPRESSION
     Dosage: 37.5 TO 74.1
     Route: 048
     Dates: start: 20040426

REACTIONS (21)
  - PROTEINURIA [None]
  - GYNAECOMASTIA [None]
  - CEREBROVASCULAR ACCIDENT [None]
  - DIABETIC NEUROPATHY [None]
  - ANAEMIA [None]
  - CEREBRAL INFARCTION [None]
  - HAEMORRHAGIC INFARCTION [None]
  - BLINDNESS [None]
  - INJURY [None]
  - DEATH [None]
  - DIABETES MELLITUS [None]
  - DIABETIC FOOT INFECTION [None]
  - ARTHROPATHY [None]
  - DIABETIC GASTROPATHY [None]
  - CAROTID ARTERIOSCLEROSIS [None]
  - SKIN ULCER [None]
  - TRIGGER FINGER [None]
  - DEAFNESS [None]
  - WEIGHT INCREASED [None]
  - AMNESIA [None]
  - CORONARY ARTERY DISEASE [None]
